FAERS Safety Report 8129533-1 (Version None)
Quarter: 2011Q4

REPORT INFORMATION
  Report Type: 
  Country: None (occurrence: None)
  Receive Date: 20111227
  Receipt Date: 20110831
  Transmission Date: 20120403
  Serious: No
  Sender: FDA-Public Use
  Company Number: PHEH2011US03094

PATIENT
  Age: 35 Year
  Sex: Female
  Weight: 102 kg

DRUGS (3)
  1. ZYRTEC (CERITIZINE HYDROCHLORIDE) [Concomitant]
  2. VALTREX [Concomitant]
  3. GILENYA [Suspect]
     Indication: MULTIPLE SCLEROSIS
     Dosage: 0.5 MG, QD, ORAL
     Route: 048
     Dates: start: 20110823

REACTIONS (5)
  - PYREXIA [None]
  - CHILLS [None]
  - OROPHARYNGEAL PAIN [None]
  - COUGH [None]
  - NASAL CONGESTION [None]
